FAERS Safety Report 7915581-0 (Version None)
Quarter: 2011Q4

REPORT INFORMATION
  Report Type: 
  Country: None (occurrence: None)
  Receive Date: 20111115
  Receipt Date: 20110817
  Transmission Date: 20120403
  Serious: Yes (Hospitalization)
  Sender: FDA-Public Use
  Company Number: US-BRISTOL-MYERS SQUIBB COMPANY-15935653

PATIENT
  Age: 72 Year
  Sex: Female

DRUGS (2)
  1. YERVOY [Suspect]
     Dosage: 2 INFUSIONS TOTAL
     Dates: start: 20110601
  2. PREDNISONE [Concomitant]

REACTIONS (1)
  - COLITIS [None]
